FAERS Safety Report 6005216-9 (Version None)
Quarter: 2008Q4

REPORT INFORMATION
  Report Type: 
  Country: None (occurrence: None)
  Receive Date: 20081215
  Receipt Date: 20081205
  Transmission Date: 20090506
  Serious: Yes (Hospitalization, Other)
  Sender: FDA-Public Use
  Company Number: 54971

PATIENT
  Age: 33 Year
  Sex: Female

DRUGS (1)
  1. ETOMIDATE [Suspect]
     Indication: SEDATION
     Dosage: 30MG BOLUS

REACTIONS (5)
  - DECEREBRATION [None]
  - HYPERGLYCAEMIA [None]
  - LOSS OF CONSCIOUSNESS [None]
  - METABOLIC ACIDOSIS [None]
  - SUBARACHNOID HAEMORRHAGE [None]
